FAERS Safety Report 7109963-7 (Version None)
Quarter: 2010Q4

REPORT INFORMATION
  Report Type: 
  Country: None (occurrence: None)
  Receive Date: 20101118
  Receipt Date: 20101112
  Transmission Date: 20110411
  Serious: Yes (Other)
  Sender: FDA-Public Use
  Company Number: US-BAYER-200928284NA

PATIENT
  Age: 23 Year
  Sex: Female
  Weight: 96 kg

DRUGS (5)
  1. YAZ [Suspect]
     Indication: CONTRACEPTION
     Dosage: UNIT DOSE: 1 DF
     Route: 048
     Dates: start: 20070701, end: 20071207
  2. YASMIN [Suspect]
     Indication: PRODUCT USED FOR UNKNOWN INDICATION
     Route: 048
     Dates: start: 20070501, end: 20070701
  3. IMITREX [Concomitant]
     Indication: MIGRAINE
     Route: 048
  4. TOPAMAX [Concomitant]
     Indication: MIGRAINE
     Dosage: TOTAL DAILY DOSE: 200 MG
     Route: 048
  5. EFFEXOR [Concomitant]
     Indication: DEPRESSION
     Dosage: TOTAL DAILY DOSE: 150 MG
     Route: 048

REACTIONS (1)
  - DEEP VEIN THROMBOSIS [None]
